FAERS Safety Report 15787391 (Version 5)
Quarter: 2019Q1

REPORT INFORMATION
  Report Type: Report from Study
  Country: DE (occurrence: DE)
  Receive Date: 20190103
  Receipt Date: 20190325
  Transmission Date: 20190417
  Serious: Yes (Life-Threatening, Hospitalization)
  Sender: FDA-Public Use
  Company Number: PHHO2018DE013577

PATIENT
  Age: 63 Year
  Sex: Male
  Weight: 100 kg

DRUGS (13)
  1. COMPARATOR DAUNORUBICIN [Suspect]
     Active Substance: DAUNORUBICIN
     Indication: ACUTE MYELOID LEUKAEMIA
     Dosage: 60 MG/M2, QD
     Route: 042
     Dates: start: 20181221
  2. ACETYLSALICYLIC ACID [Concomitant]
     Active Substance: ASPIRIN
     Indication: PROPHYLAXIS
     Dosage: UNK
     Route: 065
     Dates: start: 20180101
  3. SIMVASIM [Concomitant]
     Indication: HYPERCHOLESTEROLAEMIA
  4. MORPHIN [Concomitant]
     Active Substance: MORPHINE
     Indication: ACUTE MYOCARDIAL INFARCTION
     Route: 065
     Dates: start: 20181225
  5. SIMVASIM [Concomitant]
     Indication: GENERAL PHYSICAL HEALTH DETERIORATION
     Route: 065
     Dates: start: 20180101
  6. FUROSEMID [Concomitant]
     Active Substance: FUROSEMIDE
     Indication: ACUTE MYOCARDIAL INFARCTION
     Dosage: UNK
     Route: 065
     Dates: start: 20181225
  7. TAMSULOSIN [Concomitant]
     Active Substance: TAMSULOSIN
     Indication: GENERAL PHYSICAL HEALTH DETERIORATION
     Dosage: UNK
     Route: 065
     Dates: start: 20180101
  8. COMPARATOR CYTARABINE [Suspect]
     Active Substance: CYTARABINE
     Indication: ACUTE MYELOID LEUKAEMIA
     Dosage: 200 MG/M2, QD
     Route: 042
     Dates: start: 20181221
  9. CGP 41251 [Suspect]
     Active Substance: MIDOSTAURIN
     Indication: ACUTE MYELOID LEUKAEMIA
     Dosage: UNK
     Route: 048
     Dates: start: 20190115
  10. ACETYLSALICYLIC ACID [Concomitant]
     Active Substance: ASPIRIN
     Indication: HYPERTENSION
  11. RAMIPRIL. [Concomitant]
     Active Substance: RAMIPRIL
     Indication: GENERAL PHYSICAL HEALTH DETERIORATION
     Dosage: UNK
     Route: 065
     Dates: start: 20180101
  12. PANTOPRAZOL [Concomitant]
     Active Substance: PANTOPRAZOLE SODIUM
     Indication: GENERAL PHYSICAL CONDITION
     Dosage: UNK
     Route: 065
     Dates: start: 20180101
  13. CARVEDILOL. [Concomitant]
     Active Substance: CARVEDILOL
     Indication: GENERAL PHYSICAL HEALTH DETERIORATION
     Dosage: UNK
     Route: 065
     Dates: start: 20180101

REACTIONS (1)
  - Sepsis [Recovered/Resolved with Sequelae]

NARRATIVE: CASE EVENT DATE: 20181225
